FAERS Safety Report 12745559 (Version 2)
Quarter: 2016Q4

REPORT INFORMATION
  Report Type: Spontaneous
  Country: JP (occurrence: JP)
  Receive Date: 20160915
  Receipt Date: 20161018
  Transmission Date: 20170207
  Serious: Yes (Hospitalization)
  Sender: FDA-Public Use
  Company Number: JP-ROCHE-1830757

PATIENT
  Age: 8 Year
  Sex: Male

DRUGS (8)
  1. SOLU-CORTEF [Concomitant]
     Active Substance: HYDROCORTISONE SODIUM SUCCINATE
  2. ALESION [Concomitant]
     Active Substance: EPINASTINE HYDROCHLORIDE
  3. FLUTICASONE PROPIONATE. [Concomitant]
     Active Substance: FLUTICASONE PROPIONATE
  4. SINGULAIR JUNIOR [Concomitant]
  5. XOLAIR [Suspect]
     Active Substance: OMALIZUMAB
     Indication: ASTHMA
     Dosage: UNK
     Route: 058
  6. FLUTIFORM [Concomitant]
     Active Substance: FLUTICASONE PROPIONATE\FORMOTEROL FUMARATE
  7. NASONEX [Concomitant]
     Active Substance: MOMETASONE FUROATE
  8. MEPTIN [Concomitant]
     Active Substance: PROCATEROL HYDROCHLORIDE

REACTIONS (5)
  - Nasopharyngitis [Unknown]
  - Drug ineffective [Unknown]
  - Asthma [Recovering/Resolving]
  - Cough [Unknown]
  - Pyrexia [Unknown]

NARRATIVE: CASE EVENT DATE: 20160718
